FAERS Safety Report 12991743 (Version 1)
Quarter: 2016Q4

REPORT INFORMATION
  Report Type: Spontaneous
  Country: US (occurrence: US)
  Receive Date: 20161201
  Receipt Date: 20161201
  Transmission Date: 20170207
  Serious: Yes (Other)
  Sender: FDA-Public Use
  Company Number: US-ELI_LILLY_AND_COMPANY-US201611007638

PATIENT
  Age: 54 Year
  Sex: Male

DRUGS (11)
  1. HUMALOG [Suspect]
     Active Substance: INSULIN LISPRO
     Dosage: 40 U, QD
     Route: 058
     Dates: start: 201606, end: 201609
  2. PROAIR HFA [Concomitant]
     Active Substance: ALBUTEROL SULFATE
     Indication: PRODUCT USED FOR UNKNOWN INDICATION
     Dosage: UNK, UNKNOWN
     Route: 065
  3. HUMALOG [Suspect]
     Active Substance: INSULIN LISPRO
     Indication: TYPE 1 DIABETES MELLITUS
     Dosage: 40 U, QD
     Route: 058
     Dates: start: 1998
  4. ADVAIR HFA [Concomitant]
     Active Substance: FLUTICASONE PROPIONATE\SALMETEROL XINAFOATE
     Indication: PRODUCT USED FOR UNKNOWN INDICATION
     Dosage: UNK, UNKNOWN
     Route: 065
  5. PRAVASTATIN. [Concomitant]
     Active Substance: PRAVASTATIN
     Indication: PRODUCT USED FOR UNKNOWN INDICATION
     Dosage: 10 MG, QD
     Route: 065
  6. HYDROCHLOROTH [Concomitant]
     Active Substance: HYDROCHLOROTHIAZIDE
     Indication: PRODUCT USED FOR UNKNOWN INDICATION
     Dosage: 12 MG, QD
     Route: 065
  7. ANTABUSE [Concomitant]
     Active Substance: DISULFIRAM
     Indication: PRODUCT USED FOR UNKNOWN INDICATION
     Dosage: 250 MG, QD
     Route: 065
  8. HUMALOG [Suspect]
     Active Substance: INSULIN LISPRO
     Dosage: 15 U, QD
     Route: 058
     Dates: start: 201606, end: 201609
  9. HUMALOG [Suspect]
     Active Substance: INSULIN LISPRO
     Dosage: 40 U, QD
     Route: 058
     Dates: start: 201609
  10. RAMIPRIL. [Concomitant]
     Active Substance: RAMIPRIL
     Indication: PRODUCT USED FOR UNKNOWN INDICATION
     Dosage: 10 MG, QD
     Route: 065
  11. CITALOPRAM [Concomitant]
     Active Substance: CITALOPRAM HYDROBROMIDE
     Indication: PRODUCT USED FOR UNKNOWN INDICATION
     Dosage: 65 MG, QD
     Route: 065

REACTIONS (4)
  - Blood glucose increased [Recovered/Resolved]
  - Hypoglycaemic unconsciousness [Recovered/Resolved]
  - Road traffic accident [Recovered/Resolved]
  - Incorrect product storage [Unknown]

NARRATIVE: CASE EVENT DATE: 201606
